FAERS Safety Report 6468852-1 (Version None)
Quarter: 2009Q4

REPORT INFORMATION
  Report Type: 
  Country: None (occurrence: None)
  Receive Date: 20091203
  Receipt Date: 20071113
  Transmission Date: 20100525
  Serious: Yes (Hospitalization)
  Sender: FDA-Public Use
  Company Number: US-ELI_LILLY_AND_COMPANY-US200612002981

PATIENT
  Sex: Male
  Weight: 125 kg

DRUGS (12)
  1. SOMATROPIN [Suspect]
     Indication: GROWTH HORMONE DEFICIENCY
     Dosage: 0.3 MG, DAILY (1/D)
     Route: 058
     Dates: start: 20040407
  2. CHORIONIC GONADOTROPIN [Concomitant]
     Indication: HYPOGONADISM
     Dosage: 1000 U, QOD
     Route: 058
  3. EFFEXOR [Concomitant]
     Indication: DEPRESSION
     Dosage: UNK MG, DAILY (1/D)
     Dates: start: 20040101
  4. OXYCONTIN [Concomitant]
     Indication: HEADACHE
     Dosage: 20 MG, DAILY (1/D)
     Dates: start: 20030101
  5. TOPAMAX [Concomitant]
     Indication: HEADACHE
     Dosage: 50 MG, DAILY (1/D)
     Dates: start: 20030101
  6. PHENERGAN HCL [Concomitant]
     Indication: HEADACHE
     Dosage: 25 MG, AS NEEDED
     Dates: start: 20030101
  7. XANAX                                   /USA/ [Concomitant]
     Indication: HEADACHE
     Dosage: 0.25 MG, AS NEEDED
  8. LOPRESSOR [Concomitant]
     Indication: HYPERTENSION
     Dosage: 50 MG, 2/D
  9. PREDNISONE [Concomitant]
     Indication: ADRENAL INSUFFICIENCY
     Dosage: 4 MG, DAILY (1/D)
     Route: 048
  10. LEVOTHYROXINE SODIUM [Concomitant]
     Indication: HYPOTHYROIDISM
     Dosage: 175 UG, DAILY (1/D)
     Route: 048
  11. PERCOCET [Concomitant]
     Indication: HEADACHE
     Dosage: 4 UNK, OTHER
  12. ASPIRIN [Concomitant]
     Dosage: 81 MG, DAILY (1/D)

REACTIONS (1)
  - CHEST PAIN [None]
